FAERS Safety Report 9529231 (Version 2)
Quarter: 2013Q3

REPORT INFORMATION
  Report Type: Spontaneous
  Country: US (occurrence: US)
  Receive Date: 20130917
  Receipt Date: 20130927
  Transmission Date: 20140515
  Serious: No
  Sender: FDA-Public Use
  Company Number: US-009507513-1309USA007359

PATIENT
  Sex: Female

DRUGS (1)
  1. DR. SCHOLLS CORN/CALLUS REMOVER [Suspect]
     Indication: HYPERKERATOSIS
     Dosage: UNK, QD
     Route: 061
     Dates: start: 20130728, end: 20130810

REACTIONS (1)
  - Drug effect decreased [Unknown]
